FAERS Safety Report 6257811-X (Version None)
Quarter: 2009Q3

REPORT INFORMATION
  Report Type: 
  Country: None (occurrence: None)
  Receive Date: 20090706
  Receipt Date: 20090701
  Transmission Date: 20100115
  Serious: Yes (Other)
  Sender: FDA-Public Use
  Company Number: PR-ABBOTT-09P-131-0577736-00

PATIENT
  Sex: Female
  Weight: 56.75 kg

DRUGS (3)
  1. HUMIRA [Suspect]
     Indication: CROHN'S DISEASE
     Route: 058
     Dates: start: 20090501
  2. XALATAN [Concomitant]
     Indication: GLAUCOMA
     Dosage: 1 GTT BOTH EYES HS
     Route: 047
  3. TRUSOPT [Concomitant]
     Indication: GLAUCOMA
     Dosage: 2 GTTS BOTH EYES TID

REACTIONS (2)
  - BRADYCARDIA [None]
  - DYSPNOEA [None]
